FAERS Safety Report 10499544 (Version 1)
Quarter: 2014Q4

REPORT INFORMATION
  Report Type: Spontaneous
  Country: US (occurrence: US)
  Receive Date: 20141006
  Receipt Date: 20141006
  Transmission Date: 20150528
  Serious: No
  Sender: FDA-Public Use
  Company Number: US-AMGEN INC.-USASP2014040154

PATIENT
  Sex: Female

DRUGS (8)
  1. VITAMIN D                          /00107901/ [Concomitant]
     Active Substance: ERGOCALCIFEROL
  2. IBUPROFEN. [Concomitant]
     Active Substance: IBUPROFEN
  3. CALCIUM [Concomitant]
     Active Substance: CALCIUM
  4. VITAMIN E                          /00110501/ [Concomitant]
  5. PROLIA [Suspect]
     Active Substance: DENOSUMAB
     Indication: OSTEOPOROSIS POSTMENOPAUSAL
     Dosage: 60 MG, UNK
     Route: 065
     Dates: start: 20131218
  6. VITEYES [Concomitant]
  7. MELOXICAM. [Concomitant]
     Active Substance: MELOXICAM
  8. CHONDROITIN SULFATE (BOVINE)\GLUCOSAMINE SULFATE [Concomitant]
     Active Substance: CHONDROITIN SULFATE (BOVINE)\GLUCOSAMINE SULFATE

REACTIONS (7)
  - Tooth fracture [Unknown]
  - Arthralgia [Unknown]
  - Bone graft [Unknown]
  - Bursitis [Recovering/Resolving]
  - Toothache [Unknown]
  - Fatigue [Unknown]
  - Arthritis [Unknown]

NARRATIVE: CASE EVENT DATE: 201402
